FAERS Safety Report 14391897 (Version 1)
Quarter: 2018Q1

REPORT INFORMATION
  Report Type: Spontaneous
  Country: US (occurrence: US)
  Receive Date: 20180116
  Receipt Date: 20180116
  Transmission Date: 20180509
  Serious: Yes (Other)
  Sender: FDA-Public Use
  Company Number: US-LEXICON PHARMACEUTICALS, INC-18-1606-00015

PATIENT
  Sex: Male

DRUGS (5)
  1. CAPTEM [Concomitant]
  2. IMODIUM [Concomitant]
     Active Substance: LOPERAMIDE HYDROCHLORIDE
  3. TELOTRISTAT ETHYL [Suspect]
     Active Substance: TELOTRISTAT ETHYL
     Indication: CARCINOID TUMOUR OF THE SMALL BOWEL
     Route: 048
     Dates: start: 20170527, end: 2017
  4. TELOTRISTAT ETHYL [Suspect]
     Active Substance: TELOTRISTAT ETHYL
     Route: 048
     Dates: start: 2017
  5. AFINITOR [Concomitant]
     Active Substance: EVEROLIMUS
     Dates: start: 201711

REACTIONS (3)
  - Fatigue [Unknown]
  - Cardiac valve disease [Not Recovered/Not Resolved]
  - Anaemia [Not Recovered/Not Resolved]
